FAERS Safety Report 6952531-8 (Version None)
Quarter: 2010Q3

REPORT INFORMATION
  Report Type: 
  Country: None (occurrence: None)
  Receive Date: 20100829
  Receipt Date: 20100429
  Transmission Date: 20110219
  Serious: No
  Sender: FDA-Public Use
  Company Number: US-ABBOTT-10P-163-0641621-00

PATIENT
  Sex: Female
  Weight: 86.26 kg

DRUGS (4)
  1. NIASPAN [Suspect]
     Indication: BLOOD CHOLESTEROL INCREASED
     Dosage: AT BEDTIME
     Route: 048
     Dates: start: 20100301
  2. ALBUTEROL [Concomitant]
  3. SUDAFED 12 HOUR [Concomitant]
  4. FLONASE [Concomitant]
     Route: 045

REACTIONS (1)
  - FLUSHING [None]
